FAERS Safety Report 14356987 (Version 1)
Quarter: 2018Q1

REPORT INFORMATION
  Report Type: Spontaneous
  Country: US (occurrence: US)
  Receive Date: 20180105
  Receipt Date: 20180105
  Transmission Date: 20180509
  Serious: No
  Sender: FDA-Public Use
  Company Number: US-PFIZER INC-2017028502

PATIENT
  Age: 67 Year
  Sex: Female
  Weight: 60 kg

DRUGS (19)
  1. PROCHLORPERAZINE. [Concomitant]
     Active Substance: PROCHLORPERAZINE
     Dosage: 10 MG, AS NEEDED (Q6H PRN)
     Route: 048
     Dates: start: 20161221
  2. FUROSEMIDE. [Concomitant]
     Active Substance: FUROSEMIDE
     Dosage: 20 MG, 2X/DAY
     Route: 048
     Dates: start: 20161221
  3. XARELTO [Concomitant]
     Active Substance: RIVAROXABAN
     Dosage: 20 MG, 1X/DAY
     Route: 048
     Dates: start: 20161209
  4. MORPHINE [Concomitant]
     Active Substance: MORPHINE
     Dosage: 15 MG, AS NEEDED (Q4H AS NEEDED)
     Route: 048
     Dates: start: 20161123
  5. IBRANCE [Suspect]
     Active Substance: PALBOCICLIB
     Dosage: 125 MG, CYCLIC (BY MOUTH 3 WEEKS ON AND 1 WEEK OFF)
     Route: 048
     Dates: start: 201612, end: 20171219
  6. ALLOPURINOL. [Concomitant]
     Active Substance: ALLOPURINOL
     Dosage: 300 MG, UNK
     Dates: start: 20161217, end: 201612
  7. IBRANCE [Suspect]
     Active Substance: PALBOCICLIB
     Dosage: 125 MG, CYCLIC (TAKE 1 CAPSULE PO QD DAY 1-21 OFF)
     Route: 048
     Dates: start: 20161123, end: 2016
  8. SODIUM CHLORIDE. [Concomitant]
     Active Substance: SODIUM CHLORIDE
     Dosage: 1000 ML, UNK
     Route: 042
     Dates: start: 20170110
  9. IBRANCE [Suspect]
     Active Substance: PALBOCICLIB
     Indication: BREAST CANCER STAGE IV
     Dosage: 125 MG, CYCLIC (TAKE 1 CAPSULE PO QD DAY 1-21 OFF)
     Route: 048
     Dates: start: 20161111, end: 201611
  10. FASLODEX [Concomitant]
     Active Substance: FULVESTRANT
     Indication: HORMONE THERAPY
     Dosage: 500 MG, CYCLIC (CYCLE 1)
     Route: 030
     Dates: start: 20161024, end: 20161107
  11. FASLODEX [Concomitant]
     Active Substance: FULVESTRANT
     Dosage: 500 MG, CYCLIC (CYCLE 2)
     Route: 030
     Dates: start: 20161123, end: 2016
  12. FASLODEX [Concomitant]
     Active Substance: FULVESTRANT
     Dosage: 500 MG, CYCLIC (CYCLE 3)
     Route: 030
     Dates: start: 20161221
  13. FASLODEX [Concomitant]
     Active Substance: FULVESTRANT
     Dosage: 500 MG, CYCLIC (CYCLE 4)
     Route: 030
     Dates: start: 20170118
  14. SODIUM CHLORIDE. [Concomitant]
     Active Substance: SODIUM CHLORIDE
     Dosage: 1000 ML, UNK
     Route: 042
     Dates: start: 20161107
  15. ONDANSETRON [Concomitant]
     Active Substance: ONDANSETRON
     Dosage: 16 MG, UNK
     Route: 042
     Dates: start: 20161107
  16. ONDANSETRON [Concomitant]
     Active Substance: ONDANSETRON
     Dosage: UNK
     Route: 042
  17. ALLOPURINOL. [Concomitant]
     Active Substance: ALLOPURINOL
     Dosage: 300 MG, UNK
     Dates: start: 20161219
  18. POTASSIUM CHLORIDE. [Concomitant]
     Active Substance: POTASSIUM CHLORIDE
     Dosage: 20 MEQ, 1X/DAY (ER PARTICLES/CRYSTALS)
     Route: 048
     Dates: start: 20161221
  19. IBRANCE [Suspect]
     Active Substance: PALBOCICLIB
     Dosage: 125 MG, CYCLIC (TAKE 1 CAPSULE PO QD DAY 1-21 OFF)
     Route: 048
     Dates: start: 20161221, end: 201612

REACTIONS (1)
  - Neoplasm progression [Unknown]

NARRATIVE: CASE EVENT DATE: 201712
